FAERS Safety Report 7891293-7 (Version None)
Quarter: 2011Q4

REPORT INFORMATION
  Report Type: 
  Country: None (occurrence: None)
  Receive Date: 20111103
  Receipt Date: 20111025
  Transmission Date: 20120403
  Serious: Yes (Other)
  Sender: FDA-Public Use
  Company Number: US-ASTRAZENECA-2011SE64385

PATIENT
  Age: 71 Year
  Sex: Male
  Weight: 59 kg

DRUGS (3)
  1. ASPIRIN [Concomitant]
     Indication: THROMBOSIS PROPHYLAXIS
  2. TOPROL-XL [Suspect]
     Indication: ARTERIAL DISORDER
     Route: 048
  3. ABADART [Concomitant]
     Indication: PROSTATOMEGALY

REACTIONS (2)
  - ARTERIAL RUPTURE [None]
  - ARTERIAL INJURY [None]
